FAERS Safety Report 17214108 (Version 1)
Quarter: 2020Q1

REPORT INFORMATION
  Report Type: Spontaneous
  Country: US (occurrence: US)
  Receive Date: 20191227
  Receipt Date: 20191227
  Transmission Date: 20200409
  Serious: No
  Sender: FDA-Public Use
  Company Number: None

PATIENT
  Sex: Female
  Weight: 58.5 kg

DRUGS (11)
  1. NEXIUM (GENERIC) [Concomitant]
  2. MAGNESIUM [Concomitant]
     Active Substance: MAGNESIUM
  3. CRESTOR (GENERIC) [Concomitant]
     Active Substance: ROSUVASTATIN CALCIUM
  4. EMGALITY [Suspect]
     Active Substance: GALCANEZUMAB-GNLM
     Indication: MIGRAINE
     Dosage: ?          QUANTITY:1 INJECTION(S);OTHER FREQUENCY:ONCE PER MONTH;?
     Route: 058
     Dates: start: 20191106
  5. CLONAZEPAM. [Concomitant]
     Active Substance: CLONAZEPAM
  6. COENZYME Q10 [Concomitant]
     Active Substance: UBIDECARENONE
  7. RIBOFLAVIN [Concomitant]
     Active Substance: RIBOFLAVIN
  8. TRINTELLIX [Concomitant]
     Active Substance: VORTIOXETINE HYDROBROMIDE
  9. SINGULAIR (GENERIC) [Concomitant]
  10. CLARITIN (GENERIC) [Concomitant]
  11. ADVAIR DISKUS [Concomitant]
     Active Substance: FLUTICASONE PROPIONATE\SALMETEROL XINAFOATE

REACTIONS (4)
  - Dizziness [None]
  - Major depression [None]
  - Nausea [None]
  - Anxiety [None]
